FAERS Safety Report 19928035 (Version 1)
Quarter: 2021Q4

REPORT INFORMATION
  Report Type: Spontaneous
  Country: US (occurrence: US)
  Receive Date: 20211006
  Receipt Date: 20211006
  Transmission Date: 20220303
  Serious: Yes (Other)
  Sender: FDA-Public Use
  Company Number: None

PATIENT
  Age: 32 Month
  Sex: Female
  Weight: 16.2 kg

DRUGS (1)
  1. COPPERTONE KIDS SPF 50 NOS [Suspect]
     Active Substance: AVOBENZONE\HOMOSALATE\OCTISALATE\OCTOCRYLENE OR AVOBENZONE\HOMOSALATE\OCTISALATE\OXYBENZONE OR OCTIN
     Indication: Prophylaxis against solar radiation
     Dates: end: 20211005

REACTIONS (1)
  - Urticaria [None]

NARRATIVE: CASE EVENT DATE: 20210824
